FAERS Safety Report 8261435-2 (Version None)
Quarter: 2012Q2

REPORT INFORMATION
  Report Type: 
  Country: None (occurrence: None)
  Receive Date: 20120405
  Receipt Date: 20120402
  Transmission Date: 20120825
  Serious: Yes (Disabling)
  Sender: FDA-Public Use
  Company Number: GB-PFIZER INC-2012051887

PATIENT
  Age: 47 Year
  Sex: Male
  Weight: 96.9 kg

DRUGS (28)
  1. VALPROATE SODIUM [Concomitant]
     Dosage: UNK
     Dates: start: 20111110, end: 20111208
  2. CINCHOCAINE [Concomitant]
     Dosage: UNK
     Dates: start: 20111125, end: 20111205
  3. GLYCERYL TRINITRATE [Concomitant]
     Dosage: UNK
     Dates: start: 20111025, end: 20111209
  4. OMEPRAZOLE [Concomitant]
     Dosage: UNK
     Dates: start: 20111110, end: 20111208
  5. PROCTOSEDYL ^HOECHST^ [Concomitant]
     Dosage: UNK
     Dates: start: 20111025, end: 20111209
  6. RAMIPRIL [Concomitant]
     Dosage: UNK
     Dates: start: 20111110, end: 20111208
  7. SIMVASTATIN [Concomitant]
     Dosage: UNK
     Dates: start: 20111110, end: 20111208
  8. BISOPROLOL [Concomitant]
     Dosage: UNK
     Dates: start: 20111110, end: 20111208
  9. BISOPROLOL [Concomitant]
     Dosage: UNK
     Dates: start: 20111213, end: 20120208
  10. ACETYLSALICYLIC ACID [Concomitant]
     Dosage: UNK
     Dates: start: 20111110, end: 20111208
  11. GLYCEROL [Concomitant]
     Dosage: UNK
     Dates: start: 20111207, end: 20111209
  12. PARACETAMOL [Concomitant]
     Dosage: UNK
     Dates: start: 20111213, end: 20120208
  13. OTOMIZE [Concomitant]
     Dosage: UNK
     Dates: start: 20111114, end: 20111205
  14. AMLODIPINE BESILATE [Suspect]
     Dosage: 5 MG, 1X/DAY
     Dates: start: 20120117, end: 20120131
  15. ACETYLSALICYLIC ACID [Concomitant]
     Dosage: UNK
     Dates: start: 20111213, end: 20120208
  16. BETAMETHASONE VALERATE [Concomitant]
     Dosage: UNK
     Dates: start: 20120117, end: 20120214
  17. VALPROATE SODIUM [Concomitant]
     Dosage: UNK
     Dates: start: 20111213, end: 20120208
  18. PARACETAMOL [Concomitant]
     Dosage: UNK
     Dates: start: 20111110, end: 20111208
  19. PROCTOSEDYL ^HOECHST^ [Concomitant]
     Dosage: UNK
     Dates: start: 20111213, end: 20120208
  20. SENNA [Concomitant]
     Dosage: UNK
     Dates: start: 20111130, end: 20111228
  21. GLYCERYL TRINITRATE [Concomitant]
     Dosage: UNK
     Dates: start: 20111213, end: 20120208
  22. LAXIDO [Concomitant]
     Dosage: UNK
     Dates: start: 20111110, end: 20111208
  23. LAXIDO [Concomitant]
     Dosage: UNK
     Dates: start: 20111213, end: 20120208
  24. OMEPRAZOLE [Concomitant]
     Dosage: UNK
     Dates: start: 20111213, end: 20120208
  25. BENDROFLUMETHIAZIDE [Concomitant]
     Dosage: UNK
     Dates: start: 20111110, end: 20111208
  26. BENDROFLUMETHIAZIDE [Concomitant]
     Dosage: UNK
     Dates: start: 20111213, end: 20120208
  27. RAMIPRIL [Concomitant]
     Dosage: UNK
     Dates: start: 20111213, end: 20120208
  28. SIMVASTATIN [Concomitant]
     Dosage: UNK
     Dates: start: 20111213, end: 20120208

REACTIONS (1)
  - EPILEPSY [None]
